FAERS Safety Report 25831930 (Version 2)
Quarter: 2025Q4

REPORT INFORMATION
  Report Type: Spontaneous
  Country: US (occurrence: US)
  Receive Date: 20250922
  Receipt Date: 20251009
  Transmission Date: 20260117
  Serious: Yes (Other)
  Sender: TEVA
  Company Number: US-TEVA-VS-3373830

PATIENT
  Age: 20 Year
  Sex: Male

DRUGS (1)
  1. TRIAMCINOLONE [Suspect]
     Active Substance: TRIAMCINOLONE
     Indication: Macular hole
     Dosage: GRADUALLY WEANED OFF, TRIAMCINOLONE-ACETONIDE, PATIENT ROA : INTRAOCULAR
     Route: 065

REACTIONS (2)
  - Intraocular pressure increased [Recovered/Resolved]
  - Off label use [Unknown]
